FAERS Safety Report 10222972 (Version 3)
Quarter: 2016Q3

REPORT INFORMATION
  Report Type: Report from Study
  Country: AT (occurrence: AT)
  Receive Date: 20140607
  Receipt Date: 20160705
  Transmission Date: 20161109
  Serious: Yes (Other)
  Sender: FDA-Public Use
  Company Number: PHHY2014AT069423

PATIENT
  Sex: Male
  Weight: 106 kg

DRUGS (2)
  1. STI571 [Suspect]
     Active Substance: IMATINIB MESYLATE
     Indication: CHRONIC MYELOID LEUKAEMIA
     Dosage: 400 MG, UNK
     Route: 065
  2. TASIGNA [Suspect]
     Active Substance: NILOTINIB
     Indication: PRODUCT USED FOR UNKNOWN INDICATION
     Dosage: LESS THAN 400 MG, TWICE DAILY (BID)
     Route: 065

REACTIONS (6)
  - Pain in extremity [Unknown]
  - Dyspnoea [Unknown]
  - Interstitial lung disease [Unknown]
  - Lung disorder [Unknown]
  - Polyneuropathy [Unknown]
  - Obesity [Unknown]
